FAERS Safety Report 9778675 (Version 2)
Quarter: 2014Q1

REPORT INFORMATION
  Report Type: Spontaneous
  Country: AU (occurrence: AU)
  Receive Date: 20131223
  Receipt Date: 20140102
  Transmission Date: 20141002
  Serious: Yes (Life-Threatening, Other)
  Sender: FDA-Public Use
  Company Number: AU-UCBSA-106118

PATIENT
  Sex: Female

DRUGS (9)
  1. VIMPAT [Suspect]
     Indication: CONVULSION
     Route: 048
  2. KEPPRA [Suspect]
     Indication: CONVULSION
     Route: 048
  3. KEPPRA [Suspect]
     Indication: CONVULSION
  4. BACLOFEN [Suspect]
     Dosage: 3-4 TIMES A DAY
     Route: 048
  5. BACLOFEN [Suspect]
     Dosage: JUST BEFORE BED
     Route: 048
  6. OMEPRAZOLE [Suspect]
     Route: 048
  7. CLONAZEPAM [Suspect]
     Dosage: UNKNOWN
  8. DILANTIN [Suspect]
  9. DIAZEPAM [Suspect]

REACTIONS (8)
  - Infection [Unknown]
  - Cardiac failure [Unknown]
  - Hepatic failure [Unknown]
  - Renal failure [Unknown]
  - Convulsion [Recovering/Resolving]
  - Weight decreased [Recovering/Resolving]
  - Immunisation [Unknown]
  - Drug ineffective [Not Recovered/Not Resolved]
